FAERS Safety Report 10096006 (Version 1)
Quarter: 2014Q2

REPORT INFORMATION
  Report Type: Report from Study
  Country: US (occurrence: US)
  Receive Date: 20140422
  Receipt Date: 20140422
  Transmission Date: 20141212
  Serious: Yes (Hospitalization)
  Sender: FDA-Public Use
  Company Number: US-GLAXOSMITHKLINE-A1070197A

PATIENT
  Age: 84 Year
  Sex: Male
  Weight: 76.8 kg

DRUGS (7)
  1. DABRAFENIB [Suspect]
     Indication: PAPILLARY THYROID CANCER
     Dosage: 150MG TWICE PER DAY
     Route: 048
     Dates: start: 20131025
  2. TRAMETINIB [Suspect]
     Indication: PAPILLARY THYROID CANCER
     Dosage: 2MG PER DAY
     Route: 048
     Dates: start: 20131025
  3. METFORMIN [Concomitant]
  4. VALSARTAN / HYDROCHLOROTHIAZIDE [Concomitant]
  5. LEVOTHYROXINE [Concomitant]
  6. ASPIRIN [Concomitant]
  7. GLYBURIDE [Concomitant]

REACTIONS (4)
  - Pyrexia [Unknown]
  - Duodenal ulcer [Unknown]
  - Small intestinal haemorrhage [Unknown]
  - Anaemia [Unknown]
